FAERS Safety Report 12622693 (Version 1)
Quarter: 2016Q3

REPORT INFORMATION
  Report Type: Spontaneous
  Country: AU (occurrence: AU)
  Receive Date: 20160804
  Receipt Date: 20160804
  Transmission Date: 20161109
  Serious: Yes (Other)
  Sender: FDA-Public Use
  Company Number: AU-ASTRAZENECA-2016SE83197

PATIENT
  Sex: Male

DRUGS (9)
  1. COVERSYL [Suspect]
     Active Substance: PERINDOPRIL
     Route: 065
  2. NORVASC [Suspect]
     Active Substance: AMLODIPINE BESYLATE
     Route: 065
  3. IMDUR [Suspect]
     Active Substance: ISOSORBIDE MONONITRATE
     Route: 048
  4. SLOW-K [Suspect]
     Active Substance: POTASSIUM CHLORIDE
     Route: 065
  5. LASIX [Suspect]
     Active Substance: FUROSEMIDE
     Route: 065
  6. LOSEC [Suspect]
     Active Substance: OMEPRAZOLE
     Route: 048
  7. COLGOUT [Suspect]
     Active Substance: COLCHICINE
     Route: 065
  8. METFORMIN HYDROCHLORIDE. [Suspect]
     Active Substance: METFORMIN HYDROCHLORIDE
     Dosage: NON AZ PRODUCT
     Route: 065
  9. VENTOLIN [Suspect]
     Active Substance: ALBUTEROL SULFATE
     Route: 065

REACTIONS (5)
  - Hepatic failure [Unknown]
  - Acidosis [Unknown]
  - Hypotension [Unknown]
  - Lactic acidosis [Unknown]
  - Acute kidney injury [Unknown]
